FAERS Safety Report 19355322 (Version 2)
Quarter: 2025Q2

REPORT INFORMATION
  Report Type: Spontaneous
  Country: CZ (occurrence: CZ)
  Receive Date: 20210601
  Receipt Date: 20250612
  Transmission Date: 20250717
  Serious: Yes (Hospitalization, Other)
  Sender: UCB
  Company Number: CZ-UCBSA-2021025448

PATIENT
  Sex: Female
  Weight: 70 kg

DRUGS (4)
  1. BRIVIACT [Suspect]
     Active Substance: BRIVARACETAM
     Indication: Temporal lobe epilepsy
     Dosage: 50 MILLIGRAM, 2X/DAY (BID)
     Route: 048
     Dates: start: 20210315, end: 20210315
  2. BRIVIACT [Suspect]
     Active Substance: BRIVARACETAM
     Dates: start: 20210316, end: 20210503
  3. LAMICTAL [Concomitant]
     Active Substance: LAMOTRIGINE
     Indication: Temporal lobe epilepsy
     Dosage: 150 MILLIGRAM, 2X/DAY (BID)
     Route: 048
     Dates: start: 2018, end: 20210502
  4. LAMICTAL [Concomitant]
     Active Substance: LAMOTRIGINE
     Dosage: 50 MILLIGRAM, ONCE DAILY (QD)
     Route: 048
     Dates: start: 20210503, end: 20210510

REACTIONS (1)
  - Dermatitis bullous [Recovered/Resolved]

NARRATIVE: CASE EVENT DATE: 20210316
